FAERS Safety Report 16590194 (Version 7)
Quarter: 2023Q1

REPORT INFORMATION
  Report Type: Spontaneous
  Country: CA (occurrence: CA)
  Receive Date: 20190718
  Receipt Date: 20230203
  Transmission Date: 20230418
  Serious: Yes (Hospitalization, Other)
  Sender: FDA-Public Use
  Company Number: CA-TEVA-2018-CA-968075

PATIENT
  Age: 44 Year
  Sex: Male

DRUGS (42)
  1. ATAZANAVIR SULFATE [Interacting]
     Active Substance: ATAZANAVIR SULFATE
     Indication: HIV infection
     Route: 065
  2. BUPROPION HYDROBROMIDE [Interacting]
     Active Substance: BUPROPION HYDROBROMIDE
     Indication: Depression
     Route: 065
  3. BUPROPION HYDROBROMIDE [Interacting]
     Active Substance: BUPROPION HYDROBROMIDE
     Indication: Bipolar disorder
     Route: 065
  4. BUPROPION HYDROBROMIDE [Interacting]
     Active Substance: BUPROPION HYDROBROMIDE
     Route: 065
  5. BUPROPION HYDROBROMIDE [Interacting]
     Active Substance: BUPROPION HYDROBROMIDE
     Route: 065
  6. CITALOPRAM HYDROBROMIDE [Suspect]
     Active Substance: CITALOPRAM HYDROBROMIDE
     Indication: Psychotic disorder
     Route: 065
  7. CITALOPRAM HYDROBROMIDE [Suspect]
     Active Substance: CITALOPRAM HYDROBROMIDE
     Indication: Product used for unknown indication
  8. CLONAZEPAM [Interacting]
     Active Substance: CLONAZEPAM
     Indication: Product used for unknown indication
     Route: 048
  9. CLONAZEPAM [Interacting]
     Active Substance: CLONAZEPAM
     Indication: Depression
     Route: 065
  10. CLONAZEPAM [Interacting]
     Active Substance: CLONAZEPAM
     Indication: Bipolar disorder
     Route: 065
  11. CLONAZEPAM [Interacting]
     Active Substance: CLONAZEPAM
     Route: 065
  12. CLONAZEPAM [Interacting]
     Active Substance: CLONAZEPAM
     Route: 065
  13. CLONAZEPAM [Interacting]
     Active Substance: CLONAZEPAM
     Route: 065
  14. CLONAZEPAM [Interacting]
     Active Substance: CLONAZEPAM
     Route: 065
  15. QUETIAPINE FUMARATE [Interacting]
     Active Substance: QUETIAPINE FUMARATE
     Indication: Depression
     Route: 065
  16. QUETIAPINE FUMARATE [Interacting]
     Active Substance: QUETIAPINE FUMARATE
     Indication: Bipolar disorder
     Route: 048
  17. QUETIAPINE FUMARATE [Interacting]
     Active Substance: QUETIAPINE FUMARATE
     Route: 048
  18. QUETIAPINE FUMARATE [Interacting]
     Active Substance: QUETIAPINE FUMARATE
     Route: 048
  19. QUETIAPINE FUMARATE [Interacting]
     Active Substance: QUETIAPINE FUMARATE
     Route: 048
  20. RISPERIDONE [Interacting]
     Active Substance: RISPERIDONE
     Indication: Depression
     Route: 065
  21. ISENTRESS [Suspect]
     Active Substance: RALTEGRAVIR POTASSIUM
     Indication: HIV infection
     Dosage: 800 MILLIGRAM DAILY;
     Route: 065
  22. ISENTRESS [Suspect]
     Active Substance: RALTEGRAVIR POTASSIUM
     Indication: Product used for unknown indication
     Route: 065
  23. RITONAVIR [Suspect]
     Active Substance: RITONAVIR
     Indication: HIV infection
     Route: 065
  24. RITONAVIR [Suspect]
     Active Substance: RITONAVIR
     Indication: Depression
  25. SUSTIVA [Suspect]
     Active Substance: EFAVIRENZ
     Indication: HIV infection
     Route: 065
  26. SUSTIVA [Suspect]
     Active Substance: EFAVIRENZ
     Indication: Depression
     Dosage: 400 MILLIGRAM DAILY;
     Route: 048
  27. SERTRALINE HYDROCHLORIDE [Interacting]
     Active Substance: SERTRALINE HYDROCHLORIDE
     Indication: Bipolar disorder
     Route: 065
  28. ZOPICLONE [Interacting]
     Active Substance: ZOPICLONE
     Indication: Bipolar disorder
     Route: 065
  29. KALETRA [Suspect]
     Active Substance: LOPINAVIR\RITONAVIR
     Indication: HIV infection
     Route: 065
  30. LAMIVUDINE [Suspect]
     Active Substance: LAMIVUDINE
     Indication: HIV infection
     Route: 065
  31. RALTEGRAVIR POTASSIUM [Suspect]
     Active Substance: RALTEGRAVIR POTASSIUM
     Indication: HIV infection
     Dosage: 400 MILLIGRAM DAILY;
     Route: 048
  32. RALTEGRAVIR POTASSIUM [Suspect]
     Active Substance: RALTEGRAVIR POTASSIUM
     Indication: Depression
     Dosage: 400 MILLIGRAM DAILY;
     Route: 048
  33. RALTEGRAVIR POTASSIUM [Suspect]
     Active Substance: RALTEGRAVIR POTASSIUM
     Dosage: 400 MILLIGRAM DAILY;
     Route: 065
  34. ENFUVIRTIDE [Suspect]
     Active Substance: ENFUVIRTIDE
     Indication: Product used for unknown indication
     Route: 065
  35. VALPROIC ACID [Suspect]
     Active Substance: VALPROIC ACID
     Indication: Bipolar disorder
     Route: 065
  36. EMTRIVA [Concomitant]
     Active Substance: EMTRICITABINE
     Indication: HIV infection
     Route: 065
  37. EMTRIVA [Concomitant]
     Active Substance: EMTRICITABINE
     Indication: Depression
  38. FUZEON SINGLE USE VIAL [Concomitant]
     Indication: Product used for unknown indication
     Route: 065
  39. TENOFOVIR [Concomitant]
     Active Substance: TENOFOVIR
     Indication: HIV infection
     Route: 065
  40. TENOFOVIR [Concomitant]
     Active Substance: TENOFOVIR
     Indication: Depression
  41. EMTRICITABINE [Concomitant]
     Active Substance: EMTRICITABINE
     Indication: Depression
     Route: 065
  42. ENFUVIRTIDE [Concomitant]
     Active Substance: ENFUVIRTIDE
     Indication: Depression
     Route: 065

REACTIONS (12)
  - Anxiety [Recovered/Resolved]
  - Depression [Recovered/Resolved]
  - Depression suicidal [Recovered/Resolved]
  - Depressive symptom [Recovered/Resolved]
  - Paranoia [Recovered/Resolved]
  - Psychiatric decompensation [Recovered/Resolved]
  - Psychomotor retardation [Recovered/Resolved]
  - Psychomotor skills impaired [Recovered/Resolved]
  - Psychotic disorder [Recovered/Resolved]
  - Suicidal ideation [Recovered/Resolved]
  - Tearfulness [Recovered/Resolved]
  - Drug interaction [Recovered/Resolved]
